FAERS Safety Report 10227418 (Version 1)
Quarter: 2014Q2

REPORT INFORMATION
  Report Type: Spontaneous
  Country: GB (occurrence: GB)
  Receive Date: 20140610
  Receipt Date: 20140610
  Transmission Date: 20141212
  Serious: Yes (Other)
  Sender: FDA-Public Use
  Company Number: GB-TEVA-485907ISR

PATIENT
  Age: 69 Year
  Sex: Female
  Weight: 51 kg

DRUGS (6)
  1. AMITRIPTYLINE [Suspect]
     Dates: start: 20140515
  2. CLARITHROMYCIN [Concomitant]
     Dates: start: 20140410, end: 20140417
  3. LANSOPRAZOLE [Concomitant]
     Dates: start: 20140127, end: 20140224
  4. LANSOPRAZOLE [Concomitant]
     Dates: start: 20140303, end: 20140429
  5. TRAMADOL [Concomitant]
     Dates: start: 20140401, end: 20140413
  6. TRAMADOL [Concomitant]
     Dates: start: 20140303, end: 20140315

REACTIONS (3)
  - Somnolence [Recovering/Resolving]
  - Hangover [Recovering/Resolving]
  - Malaise [Recovering/Resolving]
